FAERS Safety Report 5599737-0 (Version None)
Quarter: 2008Q1

REPORT INFORMATION
  Report Type: 
  Country: None (occurrence: None)
  Receive Date: 20080118
  Receipt Date: 20080118
  Transmission Date: 20080703
  Serious: Yes (Life-Threatening, Hospitalization)
  Sender: FDA-Public Use
  Company Number: None

PATIENT
  Age: 65 Year
  Sex: Female

DRUGS (5)
  1. WARFARIN SODIUM [Suspect]
     Indication: THROMBOSIS PROPHYLAXIS
     Dosage: 20MG PO QD
     Route: 048
     Dates: start: 20071208, end: 20071217
  2. INSULIN [Concomitant]
  3. LASIX [Concomitant]
  4. METFORMIN HCL [Concomitant]
  5. QUINAPRIL HCL [Concomitant]

REACTIONS (5)
  - EPISTAXIS [None]
  - GINGIVAL BLEEDING [None]
  - HAEMOGLOBIN DECREASED [None]
  - INCORRECT DOSE ADMINISTERED [None]
  - INTERNATIONAL NORMALISED RATIO INCREASED [None]
